FAERS Safety Report 26046531 (Version 1)
Quarter: 2025Q4

REPORT INFORMATION
  Report Type: Spontaneous
  Country: EU (occurrence: EU)
  Receive Date: 20251114
  Receipt Date: 20251114
  Transmission Date: 20260118
  Serious: Yes (Hospitalization)
  Sender: AMGEN
  Company Number: EU-AMGEN-DNKSP2025222443

PATIENT
  Sex: Female
  Weight: 2.225 kg

DRUGS (2)
  1. ADALIMUMAB [Suspect]
     Active Substance: ADALIMUMAB
     Indication: Exposure during pregnancy
     Dosage: UNK
     Route: 064
  2. AZATHIOPRINE [Concomitant]
     Active Substance: AZATHIOPRINE
     Indication: Exposure during pregnancy
     Route: 064

REACTIONS (4)
  - Positive airway pressure therapy [Unknown]
  - Premature baby [Unknown]
  - Foetal monitoring abnormal [Unknown]
  - Low birth weight baby [Unknown]
